FAERS Safety Report 13139818 (Version 2)
Quarter: 2017Q1

REPORT INFORMATION
  Report Type: Spontaneous
  Country: KR (occurrence: KR)
  Receive Date: 20170123
  Receipt Date: 20170209
  Transmission Date: 20170428
  Serious: Yes (Hospitalization, Other)
  Sender: FDA-Public Use
  Company Number: KR-009507513-1701KOR008669

PATIENT
  Age: 75 Year
  Sex: Male
  Weight: 52.7 kg

DRUGS (19)
  1. ELOXATIN [Concomitant]
     Active Substance: OXALIPLATIN
     Indication: CHEMOTHERAPY
     Dosage: STRENGTH: 100/20 MG/ML, 127 MG, ONCE, CYCLE 1
     Route: 042
     Dates: start: 20161004, end: 20161004
  2. HARNAL [Concomitant]
     Active Substance: TAMSULOSIN HYDROCHLORIDE
     Indication: BENIGN PROSTATIC HYPERPLASIA
     Dosage: 2 TABLET, QD
     Route: 048
     Dates: start: 2012
  3. ALOXI [Concomitant]
     Active Substance: PALONOSETRON HYDROCHLORIDE
     Indication: PROPHYLAXIS OF NAUSEA AND VOMITING
     Dosage: 5 ML, ONCE
     Route: 042
     Dates: start: 20161004, end: 20161004
  4. ROSUZET COMPOSITE PACK [Concomitant]
     Active Substance: EZETIMIBE\ROSUVASTATIN
     Indication: PROPHYLAXIS
     Dosage: 1 TABLET, QD
     Route: 048
  5. DEXAMETHASONE SODIUM PHOSPHATE. [Concomitant]
     Active Substance: DEXAMETHASONE SODIUM PHOSPHATE
     Indication: PROPHYLAXIS OF NAUSEA AND VOMITING
     Dosage: STRENGTH: 5 MG/ML, 10 MG, ONCE
     Route: 042
     Dates: start: 20161004, end: 20161004
  6. GLUTATHIONE [Concomitant]
     Active Substance: GLUTATHIONE
     Indication: PROPHYLAXIS
     Dosage: 1200 MG, ONCE
     Route: 042
     Dates: start: 20161004, end: 20161004
  7. EMEND (FOSAPREPITANT DIMEGLUMINE) [Suspect]
     Active Substance: FOSAPREPITANT DIMEGLUMINE
     Dosage: 150 MG, ONCE
     Route: 042
     Dates: start: 20161004, end: 20161004
  8. EMEND (FOSAPREPITANT DIMEGLUMINE) [Suspect]
     Active Substance: FOSAPREPITANT DIMEGLUMINE
     Dosage: 150 MG, ONCE
     Route: 042
     Dates: start: 20161226, end: 20161226
  9. FLUOROURACIL. [Concomitant]
     Active Substance: FLUOROURACIL
     Indication: CHEMOTHERAPY
     Dosage: STRENGTH: 1000/20 MG/ML, 2400 MG, QD, CYCLE 1
     Route: 042
     Dates: start: 20160919, end: 20160920
  10. EMEND (FOSAPREPITANT DIMEGLUMINE) [Suspect]
     Active Substance: FOSAPREPITANT DIMEGLUMINE
     Dosage: 150 MG, ONCE
     Route: 042
     Dates: start: 20161101, end: 20161101
  11. EMEND (FOSAPREPITANT DIMEGLUMINE) [Suspect]
     Active Substance: FOSAPREPITANT DIMEGLUMINE
     Dosage: 150 MG, ONCE
     Route: 042
     Dates: start: 20161128, end: 20161128
  12. GLIMEL (GLIMEPIRIDE) [Concomitant]
     Indication: DIABETES MELLITUS
     Dosage: 1 TABLET, QD
     Route: 048
  13. TAGAMET [Concomitant]
     Active Substance: CIMETIDINE
     Indication: PROPHYLAXIS
     Dosage: STRENGTH: 200MG/2ML, 200 MG, ONCE
     Route: 042
     Dates: start: 20161004, end: 20161004
  14. SCARTERON [Concomitant]
     Indication: BENIGN PROSTATIC HYPERPLASIA
     Dosage: 1 TABLET, QD
     Route: 048
     Dates: start: 2012
  15. DUVIE [Concomitant]
     Indication: DIABETES MELLITUS
     Dosage: 1 DF, QD
     Route: 048
  16. EMEND (FOSAPREPITANT DIMEGLUMINE) [Suspect]
     Active Substance: FOSAPREPITANT DIMEGLUMINE
     Indication: PROPHYLAXIS OF NAUSEA AND VOMITING
     Dosage: 150 MG, ONCE
     Route: 042
     Dates: start: 20160919, end: 20160919
  17. DOXOFYLLINE [Concomitant]
     Active Substance: DOXOFYLLINE
     Indication: CHRONIC OBSTRUCTIVE PULMONARY DISEASE
     Dosage: 1 TABLET, BID
     Route: 048
     Dates: start: 2012
  18. EMEND (FOSAPREPITANT DIMEGLUMINE) [Suspect]
     Active Substance: FOSAPREPITANT DIMEGLUMINE
     Dosage: 150 MG, ONCE
     Route: 042
     Dates: start: 20161018, end: 20161018
  19. MYTONIN [Concomitant]
     Indication: BENIGN PROSTATIC HYPERPLASIA
     Dosage: 1 TABLET, BID
     Route: 048
     Dates: start: 2012

REACTIONS (5)
  - Asthenia [Recovered/Resolved]
  - Melaena [Recovered/Resolved]
  - Diarrhoea [Recovered/Resolved]
  - Diarrhoea [Recovered/Resolved]
  - Abdominal pain [Recovered/Resolved]

NARRATIVE: CASE EVENT DATE: 20161004
